FAERS Safety Report 6857301-7 (Version None)
Quarter: 2010Q3

REPORT INFORMATION
  Report Type: 
  Country: None (occurrence: None)
  Receive Date: 20100719
  Receipt Date: 20100715
  Transmission Date: 20110219
  Serious: Yes (Other)
  Sender: FDA-Public Use
  Company Number: US-ABBOTT-10P-163-0657321-00

PATIENT
  Age: 50 Year
  Sex: Male

DRUGS (5)
  1. KALETRA [Suspect]
     Indication: HIV INFECTION
  2. QUETIAPINE [Interacting]
     Indication: SCHIZOAFFECTIVE DISORDER
  3. PERPHENAZINE [Interacting]
     Indication: SCHIZOAFFECTIVE DISORDER
     Route: 048
  4. TRIZIVIR [Concomitant]
     Indication: HIV INFECTION
     Dosage: 300/150/300 MG
  5. BENZTROPINE MESYLATE [Concomitant]
     Indication: EXTRAPYRAMIDAL DISORDER

REACTIONS (2)
  - DRUG INTERACTION [None]
  - PRIAPISM [None]
